FAERS Safety Report 6633159-6 (Version None)
Quarter: 2010Q1

REPORT INFORMATION
  Report Type: 
  Country: None (occurrence: None)
  Receive Date: 20100312
  Receipt Date: 20100308
  Transmission Date: 20100710
  Serious: Yes (Other)
  Sender: FDA-Public Use
  Company Number: US-PFIZER INC-2010029782

PATIENT
  Age: 79 Year
  Sex: Male

DRUGS (3)
  1. DEPO-MEDROL [Suspect]
     Indication: PAIN IN EXTREMITY
     Dosage: 160 MG, SINGLE
     Route: 008
  2. OMNIPAQUE ^SCHERING^ [Suspect]
     Indication: PAIN IN EXTREMITY
     Dosage: 400 MG, SINGLE
     Route: 008
  3. MARCAINE [Suspect]
     Indication: PAIN IN EXTREMITY
     Dosage: UNK
     Route: 008

REACTIONS (3)
  - NEUROGENIC BLADDER [None]
  - NEUROGENIC BOWEL [None]
  - PARALYSIS [None]
